FAERS Safety Report 20676956 (Version 26)
Quarter: 2025Q2

REPORT INFORMATION
  Report Type: Report from Study
  Country: CA (occurrence: CA)
  Receive Date: 20220406
  Receipt Date: 20250405
  Transmission Date: 20250716
  Serious: Yes (Hospitalization, Other)
  Sender: ROCHE
  Company Number: CA-ROCHE-2954571

PATIENT
  Age: 59 Year
  Sex: Female

DRUGS (28)
  1. OCREVUS [Suspect]
     Active Substance: OCRELIZUMAB
     Indication: Relapsing-remitting multiple sclerosis
     Dosage: 300 MG AT DAY 0 AND 14, THEN 600 MG EVERY 6 MONTH
     Route: 042
     Dates: start: 20211103
  2. OCREVUS [Suspect]
     Active Substance: OCRELIZUMAB
     Route: 042
  3. OCREVUS [Suspect]
     Active Substance: OCRELIZUMAB
     Route: 042
  4. OCREVUS [Suspect]
     Active Substance: OCRELIZUMAB
     Route: 042
  5. OCREVUS [Suspect]
     Active Substance: OCRELIZUMAB
     Route: 042
  6. OCREVUS [Suspect]
     Active Substance: OCRELIZUMAB
     Route: 042
  7. PREDNISONE [Suspect]
     Active Substance: PREDNISONE
     Indication: Product used for unknown indication
     Route: 065
  8. CLONAZEPAM [Concomitant]
     Active Substance: CLONAZEPAM
  9. CLONAZEPAM [Concomitant]
     Active Substance: CLONAZEPAM
  10. IMATINIB [Concomitant]
     Active Substance: IMATINIB
     Indication: Leukaemia
  11. MODAFINIL [Concomitant]
     Active Substance: MODAFINIL
  12. BACLOFEN [Concomitant]
     Active Substance: BACLOFEN
  13. CITALOPRAM [Concomitant]
     Active Substance: CITALOPRAM
  14. IRBESARTAN [Concomitant]
     Active Substance: IRBESARTAN
  15. PANTOPRAZOLE [Concomitant]
     Active Substance: PANTOPRAZOLE
  16. TOPIRAMATE [Concomitant]
     Active Substance: TOPIRAMATE
  17. BETAHISTINE [Concomitant]
     Active Substance: BETAHISTINE
  18. METOCLOPRAMIDE [Concomitant]
     Active Substance: METOCLOPRAMIDE
  19. ARIPIPRAZOLE [Concomitant]
     Active Substance: ARIPIPRAZOLE
  20. VITAMIN C [Concomitant]
     Active Substance: ASCORBIC ACID
  21. ZINC [Concomitant]
     Active Substance: ZINC
  22. SULFATRIM [Concomitant]
     Active Substance: SULFAMETHOXAZOLE\TRIMETHOPRIM
     Dates: start: 2022
  23. DISULFIRAM [Concomitant]
     Active Substance: DISULFIRAM
  24. TOVIAZ [Concomitant]
     Active Substance: FESOTERODINE FUMARATE
  25. MIRABEGRON [Concomitant]
     Active Substance: MIRABEGRON
  26. ARIPIPRAZOLE [Concomitant]
     Active Substance: ARIPIPRAZOLE
  27. MESTINON [Concomitant]
     Active Substance: PYRIDOSTIGMINE BROMIDE
  28. LASIX [Concomitant]
     Active Substance: FUROSEMIDE

REACTIONS (28)
  - Suicidal ideation [Recovered/Resolved]
  - Infusion related reaction [Recovered/Resolved]
  - Suicidal ideation [Recovered/Resolved]
  - Aortic aneurysm [Unknown]
  - Barrett^s oesophagus [Unknown]
  - Malaise [Recovered/Resolved]
  - Insomnia [Unknown]
  - Infusion related reaction [Not Recovered/Not Resolved]
  - Headache [Recovered/Resolved]
  - SARS-CoV-2 test positive [Recovered/Resolved]
  - Depression [Unknown]
  - Dizziness [Unknown]
  - Immunodeficiency [Unknown]
  - Dysphagia [Unknown]
  - Infusion related reaction [Unknown]
  - Hypotension [Unknown]
  - Memory impairment [Not Recovered/Not Resolved]
  - Tooth fracture [Not Recovered/Not Resolved]
  - Poor quality sleep [Unknown]
  - Head injury [Unknown]
  - Skin discolouration [Unknown]
  - Dilated pores [Unknown]
  - Rash [Unknown]
  - Thrombosis [Unknown]
  - Cellulitis [Unknown]
  - Concussion [Unknown]
  - Nausea [Recovered/Resolved]
  - Headache [Recovered/Resolved]

NARRATIVE: CASE EVENT DATE: 20211103
